FAERS Safety Report 20461734 (Version 1)
Quarter: 2022Q1

REPORT INFORMATION
  Report Type: Spontaneous
  Country: US (occurrence: US)
  Receive Date: 20220211
  Receipt Date: 20220211
  Transmission Date: 20220423
  Serious: No
  Sender: FDA-Public Use
  Company Number: US-CELGENE-USA-20220202324

PATIENT
  Age: 59 Year
  Sex: Female
  Weight: 66.284 kg

DRUGS (2)
  1. REVLIMID [Suspect]
     Active Substance: LENALIDOMIDE
     Indication: Follicular lymphoma
     Dosage: 20 MILLIGRAM
     Route: 048
     Dates: start: 20210702
  2. REVLIMID [Suspect]
     Active Substance: LENALIDOMIDE
     Indication: Acute lymphocytic leukaemia
     Dosage: 15 MILLIGRAM
     Route: 048
     Dates: start: 202111

REACTIONS (1)
  - COVID-19 [Unknown]

NARRATIVE: CASE EVENT DATE: 20220207
